FAERS Safety Report 11146746 (Version 6)
Quarter: 2020Q3

REPORT INFORMATION
  Report Type: Spontaneous
  Country: DE (occurrence: DE)
  Receive Date: 20150528
  Receipt Date: 20200824
  Transmission Date: 20201102
  Serious: Yes (Other)
  Sender: FDA-Public Use
  Company Number: GXKR2015DE002553

PATIENT
  Sex: Male

DRUGS (13)
  1. VINCRISTINE [Suspect]
     Active Substance: VINCRISTINE
     Indication: MATERNAL EXPOSURE BEFORE PREGNANCY
     Dosage: THE SUSPECT MEDICATION WAS TAKEN BY THE FATHER
     Route: 064
     Dates: end: 201207
  2. NATULAN [Suspect]
     Active Substance: PROCARBAZINE HYDROCHLORIDE
     Indication: MATERNAL EXPOSURE BEFORE PREGNANCY
     Dosage: BEACOPP, 7 CYCLES 9THE SUSPECT MEDICATION WAS TAKEN BY THE FATHER)
     Route: 064
     Dates: end: 201207
  3. CYCLOPHOSPHAMIDE. [Suspect]
     Active Substance: CYCLOPHOSPHAMIDE
     Indication: MATERNAL EXPOSURE BEFORE PREGNANCY
     Dosage: (THE SUSPECT MEDICATION WAS TAKEN BY THE FATHER)
     Route: 064
     Dates: end: 201207
  4. DOXORUBICIN [Suspect]
     Active Substance: DOXORUBICIN
     Indication: FOETAL EXPOSURE DURING PREGNANCY
     Route: 065
     Dates: end: 201207
  5. ETOPOSIDE. [Suspect]
     Active Substance: ETOPOSIDE
     Indication: MATERNAL EXPOSURE BEFORE PREGNANCY
     Dosage: (THE SUSPECT MEDICATION WAS TAKEN BY THE FATHER)
     Route: 064
     Dates: end: 201207
  6. BLEOMYCIN [Suspect]
     Active Substance: BLEOMYCIN SULFATE
     Indication: MATERNAL EXPOSURE BEFORE PREGNANCY
     Dosage: THE SUSPECT MEDICATION WAS TAKEN BY THE FATHER
     Route: 064
     Dates: end: 201207
  7. ADRIAMYCIN [Suspect]
     Active Substance: DOXORUBICIN HYDROCHLORIDE
     Dosage: 7 COURSES
     Route: 065
     Dates: end: 201207
  8. PREDNISOLONE. [Suspect]
     Active Substance: PREDNISOLONE
     Indication: MATERNAL EXPOSURE BEFORE PREGNANCY
     Dosage: (THE SUSPECT MEDICATION WAS TAKEN BY THE FATHER)
     Route: 064
     Dates: end: 201207
  9. ADRIAMYCIN [Suspect]
     Active Substance: DOXORUBICIN HYDROCHLORIDE
     Indication: MATERNAL EXPOSURE BEFORE PREGNANCY
     Dosage: THE SUSPECT MEDICATION WAS TAKEN BY THE FATHER
     Route: 064
  10. NATULAN [Suspect]
     Active Substance: PROCARBAZINE HYDROCHLORIDE
     Dosage: THE SUSPECT MEDICATION WAS TAKEN BY THE FATHER
     Route: 065
     Dates: end: 201207
  11. NATULAN [Suspect]
     Active Substance: PROCARBAZINE HYDROCHLORIDE
     Dosage: THE SUSPECT MEDICATION WAS TAKEN BY THE FATHER
     Route: 065
     Dates: end: 201207
  12. NATULAN [Suspect]
     Active Substance: PROCARBAZINE HYDROCHLORIDE
     Dosage: THE SUSPECT MEDICATION WAS TAKEN BY THE FATHER
     Route: 065
     Dates: end: 201207
  13. ADRIAMYCIN [Suspect]
     Active Substance: DOXORUBICIN HYDROCHLORIDE
     Indication: PATERNAL EXPOSURE TIMING UNSPECIFIED
     Dosage: THE SUSPECT MEDICATION WAS TAKEN BY THE FATHER
     Route: 065
     Dates: end: 201207

REACTIONS (7)
  - Congenital hepatobiliary anomaly [Unknown]
  - Asplenia [Unknown]
  - Paternal exposure before pregnancy [Unknown]
  - Heart disease congenital [Not Recovered/Not Resolved]
  - Foetal exposure during pregnancy [Recovered/Resolved]
  - Paternal exposure timing unspecified [Recovered/Resolved]
  - Paternal drugs affecting foetus [Not Recovered/Not Resolved]

NARRATIVE: CASE EVENT DATE: 20150220
